FAERS Safety Report 16407094 (Version 2)
Quarter: 2019Q3

REPORT INFORMATION
  Report Type: Spontaneous
  Country: PL (occurrence: PL)
  Receive Date: 20190608
  Receipt Date: 20190707
  Transmission Date: 20191004
  Serious: Yes (Death)
  Sender: FDA-Public Use
  Company Number: PL-ABBVIE-19K-129-2813090-00

PATIENT
  Age: 60 Year
  Sex: Male
  Weight: 100 kg

DRUGS (11)
  1. VENCLYXTO [Suspect]
     Active Substance: VENETOCLAX
     Indication: CHRONIC LYMPHOCYTIC LEUKAEMIA
     Route: 048
     Dates: start: 20190510, end: 20190512
  2. MORPHINE [Concomitant]
     Active Substance: MORPHINE
     Indication: DYSPNOEA
  3. VENCLYXTO [Suspect]
     Active Substance: VENETOCLAX
     Indication: GENE MUTATION
     Route: 048
     Dates: start: 20190430, end: 20190505
  4. BERODUAL [Concomitant]
     Active Substance: FENOTEROL HYDROBROMIDE\IPRATROPIUM BROMIDE
     Indication: DYSPNOEA
     Route: 055
     Dates: start: 20190510
  5. PULMICORT TURBUHALER [Concomitant]
     Active Substance: BUDESONIDE
     Indication: DYSPNOEA
     Route: 055
     Dates: start: 20190510
  6. HYDROCORTISONE. [Concomitant]
     Active Substance: HYDROCORTISONE
     Indication: DISEASE PROGRESSION
     Dosage: 50-100 MG
     Route: 042
     Dates: start: 20190509
  7. ATROVENT [Concomitant]
     Active Substance: IPRATROPIUM BROMIDE
     Indication: DYSPNOEA
     Route: 055
     Dates: start: 20190509
  8. MATRIFEN [Concomitant]
     Active Substance: FENTANYL
     Indication: SPINAL PAIN
     Dosage: 25UG/ H
     Dates: start: 20190509
  9. HYDROCORTISONE. [Concomitant]
     Active Substance: HYDROCORTISONE
     Indication: DISEASE PROGRESSION
     Dosage: 50-100 MG
     Route: 042
     Dates: start: 20190509
  10. LACTULOSUM [Concomitant]
     Indication: CONSTIPATION
     Dosage: 1-2 TIMES DAILY
     Route: 048
     Dates: start: 20190504
  11. MORPHINE [Concomitant]
     Active Substance: MORPHINE
     Indication: SPINAL PAIN
     Route: 058
     Dates: start: 20190509

REACTIONS (15)
  - Chronic lymphocytic leukaemia [Fatal]
  - Pyrexia [Fatal]
  - Multiple organ dysfunction syndrome [Fatal]
  - Dyspnoea exertional [Fatal]
  - Hyponatraemia [Fatal]
  - Back pain [Fatal]
  - Tumour lysis syndrome [Fatal]
  - Pancytopenia [Fatal]
  - Generalised oedema [Fatal]
  - Pulmonary congestion [Fatal]
  - Renal failure [Fatal]
  - Infection [Fatal]
  - Asthenia [Fatal]
  - Agranulocytosis [Fatal]
  - Neutropenia [Unknown]

NARRATIVE: CASE EVENT DATE: 201905
